FAERS Safety Report 9668855 (Version 8)
Quarter: 2014Q1

REPORT INFORMATION
  Report Type: Report from Study
  Country: CA (occurrence: CA)
  Receive Date: 20131105
  Receipt Date: 20140314
  Transmission Date: 20141002
  Serious: Yes (Death, Hospitalization, Other)
  Sender: FDA-Public Use
  Company Number: PHHY2013CA110049

PATIENT
  Age: 87 Year
  Sex: Male

DRUGS (3)
  1. ZOMETA [Suspect]
     Indication: PROSTATE CANCER
     Dosage: 4 MG, EVERY 4 WEEKS
     Route: 042
     Dates: start: 20130228
  2. ZOMETA [Suspect]
     Dosage: 4 MG, EVERY 4 TO 6 WEEKS
     Route: 042
  3. ZOMETA [Suspect]
     Dosage: 4 MG, EVERY 6 WEEKS
     Route: 042
     Dates: end: 20140225

REACTIONS (12)
  - Myocardial infarction [Fatal]
  - Silent myocardial infarction [Unknown]
  - Dementia Alzheimer^s type [Not Recovered/Not Resolved]
  - Fall [Unknown]
  - Facial bones fracture [Unknown]
  - Excoriation [Unknown]
  - Mobility decreased [Unknown]
  - Scratch [Unknown]
  - Contusion [Unknown]
  - Pelvic pain [Unknown]
  - Arthralgia [Unknown]
  - Pain [Unknown]
